FAERS Safety Report 17396279 (Version 1)
Quarter: 2020Q1

REPORT INFORMATION
  Report Type: Spontaneous
  Country: US (occurrence: US)
  Receive Date: 20200207
  Receipt Date: 20200207
  Transmission Date: 20200409
  Serious: No
  Sender: FDA-Public Use
  Company Number: None

PATIENT
  Age: 66 Year
  Sex: Female
  Weight: 49.95 kg

DRUGS (13)
  1. MVI [Concomitant]
     Active Substance: VITAMINS
  2. TRAMADOL. [Concomitant]
     Active Substance: TRAMADOL
  3. OMEPRAZOLE. [Concomitant]
     Active Substance: OMEPRAZOLE
  4. PIQRAY [Suspect]
     Active Substance: ALPELISIB
     Indication: BREAST CANCER
     Dates: start: 20200106, end: 20200203
  5. LACTULOSE. [Concomitant]
     Active Substance: LACTULOSE
  6. GABAPENTIN. [Concomitant]
     Active Substance: GABAPENTIN
  7. REGLAN [Concomitant]
     Active Substance: METOCLOPRAMIDE HYDROCHLORIDE
  8. ALDACTONE [Concomitant]
     Active Substance: SPIRONOLACTONE
  9. ASPIRIN. [Concomitant]
     Active Substance: ASPIRIN
  10. EXCEDRIN MIGRAINE [Concomitant]
     Active Substance: ACETAMINOPHEN\ASPIRIN\CAFFEINE
  11. IBUPROFEN. [Concomitant]
     Active Substance: IBUPROFEN
  12. VITAMIN D [Concomitant]
     Active Substance: VITAMIN D NOS
  13. CALTRATE [Concomitant]
     Active Substance: CALCIUM CARBONATE

REACTIONS (5)
  - Stomatitis [None]
  - Pruritus [None]
  - Nausea [None]
  - Vomiting [None]
  - Insomnia [None]

NARRATIVE: CASE EVENT DATE: 20200207
